FAERS Safety Report 5793703-8 (Version None)
Quarter: 2008Q2

REPORT INFORMATION
  Report Type: 
  Country: None (occurrence: None)
  Receive Date: 20080627
  Receipt Date: 20080617
  Transmission Date: 20081010
  Serious: Yes (Other)
  Sender: FDA-Public Use
  Company Number: AU-WYE-G01304408

PATIENT
  Sex: Male
  Weight: 75 kg

DRUGS (5)
  1. BENEFIX [Suspect]
     Indication: FACTOR IX DEFICIENCY
     Dosage: PROPHYLAXIS:  67 IU/KG 1 TIME EVERY 3 DAYS (INTRAVENOUS)
     Route: 042
  2. BENEFIX [Suspect]
     Dosage: ON DEMAND: 67-80 IU/KG 1 TIME EVERY 2-3 DAYS
     Route: 042
  3. BENEFIX [Suspect]
     Route: 042
  4. BENEFIX [Suspect]
     Route: 042
  5. BENEFIX [Suspect]
     Route: 042

REACTIONS (4)
  - DRUG EFFECT DECREASED [None]
  - HAEMARTHROSIS [None]
  - HAEMORRHAGE [None]
  - PHARMACEUTICAL PRODUCT COMPLAINT [None]
